FAERS Safety Report 10274919 (Version 2)
Quarter: 2014Q3

REPORT INFORMATION
  Report Type: Report from Study
  Country: US (occurrence: US)
  Receive Date: 20140702
  Receipt Date: 20140702
  Transmission Date: 20150326
  Serious: Yes (Other)
  Sender: FDA-Public Use
  Company Number: US-MYLANLABS-2014S1015506

PATIENT
  Sex: Female

DRUGS (2)
  1. ORAL CONTRACEPTIVE NOS [Concomitant]
     Active Substance: UNSPECIFIED INGREDIENT
  2. AMNESTEEM [Suspect]
     Active Substance: ISOTRETINOIN
     Dates: start: 2014, end: 2014

REACTIONS (2)
  - Injury [Not Recovered/Not Resolved]
  - Road traffic accident [Not Recovered/Not Resolved]
